FAERS Safety Report 7311387-4 (Version None)
Quarter: 2011Q1

REPORT INFORMATION
  Report Type: 
  Country: None (occurrence: None)
  Receive Date: 20110216
  Receipt Date: 20110216
  Transmission Date: 20110831
  Serious: Yes (Other)
  Sender: FDA-Public Use
  Company Number: None

PATIENT
  Age: 70 Year
  Sex: Male
  Weight: 131.5431 kg

DRUGS (1)
  1. HUMALOG KWIKPEN [Suspect]
     Indication: INSULIN-REQUIRING TYPE 2 DIABETES MELLITUS
     Dosage: 16 UNITS BEFORE MEALS SQ
     Route: 058
     Dates: start: 20101227, end: 20110203

REACTIONS (3)
  - DRUG INEFFECTIVE [None]
  - INSULIN-REQUIRING TYPE 2 DIABETES MELLITUS [None]
  - PRODUCT QUALITY ISSUE [None]
